FAERS Safety Report 23349904 (Version 4)
Quarter: 2024Q2

REPORT INFORMATION
  Report Type: Report from Study
  Country: CO (occurrence: CO)
  Receive Date: 20231229
  Receipt Date: 20240527
  Transmission Date: 20240716
  Serious: Yes (Other)
  Sender: FDA-Public Use
  Company Number: CO-Korea IPSEN-2023-28390

PATIENT
  Age: 29 Year
  Sex: Female
  Weight: 85 kg

DRUGS (8)
  1. LANREOTIDE ACETATE [Suspect]
     Active Substance: LANREOTIDE ACETATE
     Indication: Acromegaly
     Dosage: VIA DEEP SUBCUTANEOUS ROUTE?PRODUCT START DATE: 22-DEC-2023
     Route: 058
     Dates: start: 20231222
  2. DAPAGLIFLOZIN [Concomitant]
     Active Substance: DAPAGLIFLOZIN
     Route: 048
     Dates: start: 20230623
  3. ATORVASTATIN [Concomitant]
     Active Substance: ATORVASTATIN
     Route: 048
     Dates: start: 20230623
  4. LEVOTHYROXINE [Concomitant]
     Active Substance: LEVOTHYROXINE\LEVOTHYROXINE SODIUM
     Route: 048
     Dates: start: 20230623
  5. DESMOPRESSIN [Concomitant]
     Active Substance: DESMOPRESSIN
     Route: 048
     Dates: start: 20230623
  6. ESTROGENS [Concomitant]
     Active Substance: ESTROGENS
     Indication: Amenorrhoea
     Route: 048
     Dates: start: 20230623
  7. MEDROGESTONE [Concomitant]
     Active Substance: MEDROGESTONE
     Indication: Amenorrhoea
     Route: 048
     Dates: start: 20230623
  8. DOLEX [Concomitant]
     Active Substance: IBUPROFEN
     Indication: Headache
     Route: 048
     Dates: start: 202305

REACTIONS (12)
  - Angina pectoris [Not Recovered/Not Resolved]
  - Presyncope [Not Recovered/Not Resolved]
  - Vomiting [Not Recovered/Not Resolved]
  - Asthenia [Not Recovered/Not Resolved]
  - Inflammation [Not Recovered/Not Resolved]
  - Tachycardia [Not Recovered/Not Resolved]
  - Headache [Not Recovered/Not Resolved]
  - General physical health deterioration [Not Recovered/Not Resolved]
  - Decreased appetite [Not Recovered/Not Resolved]
  - Nausea [Not Recovered/Not Resolved]
  - Product dose omission issue [Not Recovered/Not Resolved]
  - Product supply issue [Unknown]

NARRATIVE: CASE EVENT DATE: 20231201
